FAERS Safety Report 19770681 (Version 1)
Quarter: 2021Q3

REPORT INFORMATION
  Report Type: Spontaneous
  Country: US (occurrence: US)
  Receive Date: 20210901
  Receipt Date: 20210901
  Transmission Date: 20211014
  Serious: Yes (Other)
  Sender: FDA-Public Use
  Company Number: None

PATIENT
  Age: 38 Year
  Sex: Female
  Weight: 107 kg

DRUGS (1)
  1. REGEN?COV [Suspect]
     Active Substance: CASIRIVIMAB\IMDEVIMAB
     Indication: COVID-19
     Dates: start: 20210827, end: 20210827

REACTIONS (5)
  - Urticaria [None]
  - Lip swelling [None]
  - Anaphylactic reaction [None]
  - Chest discomfort [None]
  - Swelling face [None]

NARRATIVE: CASE EVENT DATE: 20210828
